FAERS Safety Report 19025206 (Version 1)
Quarter: 2021Q1

REPORT INFORMATION
  Report Type: Spontaneous
  Country: US (occurrence: US)
  Receive Date: 20210317
  Receipt Date: 20210317
  Transmission Date: 20210420
  Serious: Yes (Hospitalization)
  Sender: FDA-Public Use
  Company Number: None

PATIENT
  Age: 74 Year
  Sex: Male

DRUGS (2)
  1. ADCIRCA [Suspect]
     Active Substance: TADALAFIL
     Indication: PULMONARY ARTERIAL HYPERTENSION
     Route: 048
     Dates: start: 20161125
  2. AMBRISENTAN 5MG ZYDUS PHARMACEUTICALS(USA [Suspect]
     Active Substance: AMBRISENTAN
     Indication: PULMONARY ARTERIAL HYPERTENSION
     Route: 048
     Dates: start: 20201228

REACTIONS (6)
  - Condition aggravated [None]
  - Product substitution issue [None]
  - Oedema peripheral [None]
  - Dyspnoea [None]
  - Atrial flutter [None]
  - Cardiac failure congestive [None]

NARRATIVE: CASE EVENT DATE: 202012
